FAERS Safety Report 5901520-0 (Version None)
Quarter: 2008Q3

REPORT INFORMATION
  Report Type: 
  Country: None (occurrence: None)
  Receive Date: 20080925
  Receipt Date: 20080908
  Transmission Date: 20090109
  Serious: Yes (Hospitalization, Disabling)
  Sender: FDA-Public Use
  Company Number: MIN-00386

PATIENT
  Age: 45 Year
  Sex: Female

DRUGS (3)
  1. NOVOMINOCYCLIN (MINOCYCLINE) [Suspect]
     Indication: RELAPSING-REMITTING MULTIPLE SCLEROSIS
     Dosage: 100 MG TWICE DAILY
     Dates: start: 20020412
  2. NOVOMINOCYCLIN (MINOCYCLINE, 100 MG STRENGTH, TEVA) [Suspect]
     Indication: RELAPSING-REMITTING MULTIPLE SCLEROSIS
     Dosage: 100 MG TWICE DAILY
  3. ORAL CONTRACEPTIVE (UNSPECIFIED) [Concomitant]

REACTIONS (4)
  - CAROTID ARTERY DISSECTION [None]
  - HYPERTENSION [None]
  - ISCHAEMIC CEREBRAL INFARCTION [None]
  - REFUSAL OF TREATMENT BY PATIENT [None]
